FAERS Safety Report 16724353 (Version 2)
Quarter: 2019Q3

REPORT INFORMATION
  Report Type: Spontaneous
  Country: DE (occurrence: DE)
  Receive Date: 20190821
  Receipt Date: 20190911
  Transmission Date: 20191005
  Serious: Yes (Hospitalization, Other)
  Sender: FDA-Public Use
  Company Number: DE-BAYER-2019-151063

PATIENT
  Sex: Male
  Weight: 97 kg

DRUGS (1)
  1. AVALOX [Suspect]
     Active Substance: MOXIFLOXACIN HYDROCHLORIDE
     Indication: SINUSITIS NONINFECTIVE
     Dosage: 400 MG
     Dates: start: 20130915, end: 20131001

REACTIONS (15)
  - Aortic dilatation [None]
  - Impaired work ability [None]
  - Disturbance in attention [None]
  - Malaise [None]
  - Muscle contractions involuntary [None]
  - Fatigue [None]
  - Night sweats [None]
  - Splenomegaly [None]
  - Muscle tightness [None]
  - Pyrexia [None]
  - Weight decreased [None]
  - Cataract [None]
  - Cataract [None]
  - General physical health deterioration [None]
  - Myalgia [None]

NARRATIVE: CASE EVENT DATE: 20131001
